FAERS Safety Report 4476816-2 (Version None)
Quarter: 2004Q4

REPORT INFORMATION
  Report Type: 
  Country: None (occurrence: None)
  Receive Date: 20041012
  Receipt Date: 20040927
  Transmission Date: 20050328
  Serious: Yes (Hospitalization)
  Sender: FDA-Public Use
  Company Number: 8007500

PATIENT
  Sex: Female

DRUGS (1)
  1. KEPPRA [Suspect]
     Indication: AFFECTIVE DISORDER
     Dosage: 2/D PO
     Route: 048

REACTIONS (1)
  - POSTPARTUM DEPRESSION [None]
